FAERS Safety Report 7223819-0 (Version None)
Quarter: 2011Q1

REPORT INFORMATION
  Report Type: 
  Country: None (occurrence: None)
  Receive Date: 20110112
  Receipt Date: 20101206
  Transmission Date: 20110831
  Serious: No
  Sender: FDA-Public Use
  Company Number: US-ALLERGAN-1015763US

PATIENT
  Age: 83 Year
  Sex: Female

DRUGS (2)
  1. ARTIFICIAL TEARS                   /00445101/ [Concomitant]
     Indication: DRY EYE
     Dosage: UNK
  2. RESTASIS [Suspect]
     Indication: DRY EYE
     Dosage: 1 GTT, BID
     Route: 047
     Dates: end: 20101203

REACTIONS (4)
  - HEADACHE [None]
  - SCLERAL HAEMORRHAGE [None]
  - EYE IRRITATION [None]
  - ABNORMAL SENSATION IN EYE [None]
